FAERS Safety Report 8001235-1 (Version None)
Quarter: 2011Q4

REPORT INFORMATION
  Report Type: 
  Country: None (occurrence: None)
  Receive Date: 20111222
  Receipt Date: 20111212
  Transmission Date: 20120403
  Serious: No
  Sender: FDA-Public Use
  Company Number: JP-ELI_LILLY_AND_COMPANY-JP201111001601

PATIENT
  Sex: Male
  Weight: 53 kg

DRUGS (17)
  1. CARBOPLATIN [Concomitant]
     Indication: LUNG ADENOCARCINOMA STAGE IV
     Dosage: UNK UNK, OTHER
     Route: 042
     Dates: start: 20111021, end: 20111021
  2. SODIUM BICARBONATE [Concomitant]
     Indication: DENTAL DISORDER PROPHYLAXIS
     Dosage: 1 DF, TID
     Route: 050
     Dates: start: 20111020
  3. LACTOSE [Concomitant]
     Dosage: 1 G, EACH MORNING
     Route: 048
     Dates: start: 20111012, end: 20111201
  4. ESTAZOLAM [Concomitant]
     Indication: INSOMNIA
     Dosage: 2 MG, QD
     Route: 050
     Dates: start: 20111001
  5. MUCOSOLVAN L [Concomitant]
     Indication: PRODUCTIVE COUGH
     Dosage: 45 MG, QD
     Route: 048
     Dates: start: 20100301
  6. CANDESARTAN CILEXETIL [Concomitant]
     Indication: HYPERTENSION
     Dosage: 8 MG, EACH MORNING
     Route: 048
     Dates: start: 20100301, end: 20111025
  7. FOLIC ACID [Concomitant]
     Dosage: 0.5 MG, EACH MORNING
     Route: 048
     Dates: start: 20111012, end: 20111201
  8. EMEND [Concomitant]
     Dosage: UNK
     Route: 048
     Dates: start: 20111022, end: 20111023
  9. TAMSULOSIN HCL [Concomitant]
     Indication: BENIGN PROSTATIC HYPERPLASIA
     Dosage: 0.2 MG, EACH MORNING
     Route: 048
  10. EMEND [Concomitant]
     Indication: PROPHYLAXIS OF NAUSEA AND VOMITING
     Dosage: UNK
     Route: 048
     Dates: start: 20111021, end: 20111021
  11. ALIMTA [Suspect]
     Indication: LUNG ADENOCARCINOMA STAGE IV
     Dosage: 500 MG/M2, OTHER
     Route: 042
     Dates: start: 20111021, end: 20111021
  12. CHLORPROMAZINE HCL [Concomitant]
     Indication: PROPHYLAXIS
     Dosage: UNK, PRN
     Route: 048
     Dates: start: 20111024
  13. DOXAZOSIN MESYLATE [Concomitant]
     Indication: HYPERTENSION
     Dosage: 2 MG, EACH MORNING
     Route: 048
     Dates: start: 20100301, end: 20111025
  14. OLOPATADINE HCL [Concomitant]
     Dosage: 5 MG, BID
     Route: 048
  15. METHYCOBAL [Concomitant]
     Dosage: UNK
     Route: 030
     Dates: start: 20111012
  16. MAGMITT [Concomitant]
     Indication: CONSTIPATION
     Dosage: 330 MG, TID
     Route: 048
     Dates: start: 20111014
  17. ADJUST-A [Concomitant]
     Indication: CONSTIPATION
     Dosage: UNK, PRN
     Route: 048
     Dates: start: 20111024

REACTIONS (3)
  - LUNG DISORDER [None]
  - PYELONEPHRITIS [None]
  - CHOLECYSTITIS CHRONIC [None]
